FAERS Safety Report 11689425 (Version 1)
Quarter: 2015Q4

REPORT INFORMATION
  Report Type: Spontaneous
  Country: US (occurrence: None)
  Receive Date: 20151030
  Receipt Date: 20151030
  Transmission Date: 20160304
  Serious: No
  Sender: FDA-Public Use
  Company Number: None

PATIENT
  Age: 74 Year
  Sex: Male

DRUGS (20)
  1. TACROLIMUS. [Suspect]
     Active Substance: TACROLIMUS
     Indication: LUNG TRANSPLANT
     Route: 048
     Dates: start: 20111214
  2. ACYCLOVIR. [Concomitant]
     Active Substance: ACYCLOVIR
  3. FINASTEREDE [Concomitant]
  4. FLUTICASONE [Concomitant]
     Active Substance: FLUTICASONE\FLUTICASONE PROPIONATE
  5. PANTORPRAZOLE [Concomitant]
  6. PREDNISONE. [Concomitant]
     Active Substance: PREDNISONE
  7. ATORVASTATIN [Concomitant]
     Active Substance: ATORVASTATIN
  8. CLOTRAMAZOLE TRO [Concomitant]
  9. LIPITOR [Concomitant]
     Active Substance: ATORVASTATIN CALCIUM
  10. SMZ-TMP [Concomitant]
     Active Substance: SULFAMETHOXAZOLE\TRIMETHOPRIM
  11. AZITHROMYCIN [Concomitant]
     Active Substance: AZITHROMYCIN ANHYDROUS
  12. VITAMIN D [Concomitant]
     Active Substance: CHOLECALCIFEROL
  13. CALCIUM [Concomitant]
     Active Substance: CALCIUM
  14. FLOMAX [Concomitant]
     Active Substance: TAMSULOSIN HYDROCHLORIDE
  15. TYLENOL [Concomitant]
     Active Substance: ACETAMINOPHEN
  16. LISINOPRIL. [Concomitant]
     Active Substance: LISINOPRIL
  17. ULTRA NATAL. [Concomitant]
  18. ZOLOFT [Concomitant]
     Active Substance: SERTRALINE HYDROCHLORIDE
  19. BUPROPION. [Concomitant]
     Active Substance: BUPROPION
  20. CITALOPRAM [Concomitant]
     Active Substance: CITALOPRAM HYDROBROMIDE

REACTIONS (1)
  - Drug dose omission [None]

NARRATIVE: CASE EVENT DATE: 201510
